FAERS Safety Report 9643126 (Version 2)
Quarter: 2013Q4

REPORT INFORMATION
  Report Type: Spontaneous
  Country: IT (occurrence: IT)
  Receive Date: 20131024
  Receipt Date: 20131030
  Transmission Date: 20140711
  Serious: Yes (Life-Threatening)
  Sender: FDA-Public Use
  Company Number: IT-MILLENNIUM PHARMACEUTICALS, INC.-2013TEU001523

PATIENT
  Sex: 0

DRUGS (1)
  1. TACHOSIL [Suspect]
     Indication: ANASTOMOTIC LEAK

REACTIONS (2)
  - Fistula [Unknown]
  - Off label use [Unknown]
